FAERS Safety Report 8821442 (Version 2)
Quarter: 2014Q3

REPORT INFORMATION
  Report Type: Report from Study
  Country: US (occurrence: US)
  Receive Date: 20121002
  Receipt Date: 20140910
  Transmission Date: 20150326
  Serious: Yes (Death, Hospitalization, Other)
  Sender: FDA-Public Use
  Company Number: US-ROCHE-1134420

PATIENT
  Sex: Female

DRUGS (14)
  1. NEGGRAM [Concomitant]
     Active Substance: NALIDIXIC ACID
  2. NITRO PATCH [Concomitant]
  3. PREDNISONE. [Concomitant]
     Active Substance: PREDNISONE
  4. RITUXAN [Suspect]
     Active Substance: RITUXIMAB
     Route: 065
     Dates: start: 20011004
  5. LASIX [Concomitant]
     Active Substance: FUROSEMIDE
  6. ZAROXOLYN [Concomitant]
     Active Substance: METOLAZONE
     Route: 065
  7. GENTAMICIN [Concomitant]
     Active Substance: GENTAMICIN
  8. FLUDARABINE [Concomitant]
     Active Substance: FLUDARABINE PHOSPHATE
  9. AMARYL [Concomitant]
     Active Substance: GLIMEPIRIDE
  10. RITUXAN [Suspect]
     Active Substance: RITUXIMAB
     Indication: CHRONIC LYMPHOCYTIC LEUKAEMIA
     Route: 042
  11. RITUXAN [Suspect]
     Active Substance: RITUXIMAB
     Route: 065
     Dates: start: 20011008
  12. PEPCID [Concomitant]
     Active Substance: FAMOTIDINE
  13. NORVASC [Concomitant]
     Active Substance: AMLODIPINE BESYLATE
  14. LEVAQUIN [Concomitant]
     Active Substance: LEVOFLOXACIN

REACTIONS (16)
  - Death [Fatal]
  - Leukopenia [Unknown]
  - Ecchymosis [Unknown]
  - Fall [Unknown]
  - Anaemia [Unknown]
  - Hypoxia [Unknown]
  - Dyspnoea [Unknown]
  - Asthenia [Unknown]
  - Pyelonephritis [Unknown]
  - Gastrointestinal haemorrhage [Unknown]
  - Myelodysplastic syndrome [Unknown]
  - Thrombocytopenia [Unknown]
  - Cor pulmonale [Unknown]
  - Diverticulum intestinal [Unknown]
  - Urinary tract infection [Unknown]
  - Dyspnoea exertional [Unknown]
